FAERS Safety Report 7510423-X (Version None)
Quarter: 2011Q2

REPORT INFORMATION
  Report Type: 
  Country: None (occurrence: None)
  Receive Date: 20110527
  Receipt Date: 20110516
  Transmission Date: 20111010
  Serious: Yes (Death, Other)
  Sender: FDA-Public Use
  Company Number: GB-WATSON-2011-07195

PATIENT
  Age: 81 Year
  Sex: Male

DRUGS (3)
  1. SODIUM FUSIDAT [Suspect]
     Indication: OSTEOMYELITIS
     Route: 065
  2. SIMVASTATIN [Suspect]
     Indication: OSTEOMYELITIS
     Route: 048
  3. FLOXACILLIN SODIUM [Concomitant]
     Indication: OSTEOMYELITIS

REACTIONS (2)
  - RHABDOMYOLYSIS [None]
  - DRUG INTERACTION [None]
